FAERS Safety Report 16711494 (Version 3)
Quarter: 2019Q4

REPORT INFORMATION
  Report Type: Spontaneous
  Country: US (occurrence: US)
  Receive Date: 20190816
  Receipt Date: 20191007
  Transmission Date: 20200122
  Serious: No
  Sender: FDA-Public Use
  Company Number: US-SA-2019SA221525

PATIENT
  Age: 44 Year
  Sex: Male
  Weight: 83.9 kg

DRUGS (3)
  1. DUPIXENT [Suspect]
     Active Substance: DUPILUMAB
     Dosage: 300 MG, QOW
     Route: 058
     Dates: start: 20190829
  2. DUPIXENT [Suspect]
     Active Substance: DUPILUMAB
     Indication: DERMATITIS ATOPIC
     Dosage: 300 MG, QOW
     Route: 058
     Dates: start: 20190327, end: 2019
  3. NAPROXEN. [Concomitant]
     Active Substance: NAPROXEN
     Dosage: UNK

REACTIONS (7)
  - Pain in extremity [Unknown]
  - Lacrimation increased [Unknown]
  - Arthralgia [Unknown]
  - Eye irritation [Unknown]
  - Peripheral swelling [Unknown]
  - Pain in extremity [Unknown]
  - Dry eye [Unknown]

NARRATIVE: CASE EVENT DATE: 2019
